FAERS Safety Report 5757627-4 (Version None)
Quarter: 2008Q2

REPORT INFORMATION
  Report Type: 
  Country: None (occurrence: None)
  Receive Date: 20080603
  Receipt Date: 20080522
  Transmission Date: 20081010
  Serious: Yes (Hospitalization)
  Sender: FDA-Public Use
  Company Number: US-PFIZER INC-2008044659

PATIENT
  Sex: Female
  Weight: 52.2 kg

DRUGS (3)
  1. LYRICA [Suspect]
     Indication: PAIN
  2. VICODIN [Interacting]
     Indication: PAIN
  3. DRUG, UNSPECIFIED [Concomitant]

REACTIONS (4)
  - BLOOD PRESSURE INCREASED [None]
  - DRUG INTERACTION [None]
  - MALAISE [None]
  - VOMITING [None]
